FAERS Safety Report 18305875 (Version 1)
Quarter: 2020Q3

REPORT INFORMATION
  Report Type: Spontaneous
  Country: US (occurrence: US)
  Receive Date: 20200923
  Receipt Date: 20200923
  Transmission Date: 20201103
  Serious: No
  Sender: FDA-Public Use
  Company Number: None

PATIENT
  Age: 37 Year
  Sex: Female
  Weight: 108 kg

DRUGS (1)
  1. NP THYROID [Suspect]
     Active Substance: LEVOTHYROXINE\LIOTHYRONINE
     Indication: THYROID CANCER
     Dosage: ?          QUANTITY:30 TABLET(S);?
     Route: 048

REACTIONS (5)
  - Fatigue [None]
  - Nasopharyngitis [None]
  - Chills [None]
  - Pain [None]
  - Depressed level of consciousness [None]

NARRATIVE: CASE EVENT DATE: 20200920
